FAERS Safety Report 7266277-2 (Version None)
Quarter: 2011Q1

REPORT INFORMATION
  Report Type: 
  Country: None (occurrence: None)
  Receive Date: 20110119
  Receipt Date: 20110106
  Transmission Date: 20110831
  Serious: Yes (Hospitalization, Disabling)
  Sender: FDA-Public Use
  Company Number: 2010SP050517

PATIENT
  Age: 28 Year
  Sex: Female
  Weight: 47.6277 kg

DRUGS (6)
  1. UNSPECIFIED STEROIDS [Suspect]
     Indication: PRODUCT USED FOR UNKNOWN INDICATION
  2. COUMADIN [Suspect]
     Indication: THROMBOSIS
  3. COLAZAL [Concomitant]
  4. NUVARING [Suspect]
     Indication: CONTRACEPTION
     Dosage: 1 DF;QM
     Dates: start: 20031001
  5. UNSPECIFIED MEDICINES [Suspect]
     Indication: PRODUCT USED FOR UNKNOWN INDICATION
  6. PREDNISONE [Concomitant]

REACTIONS (17)
  - URINARY TRACT INFECTION [None]
  - INCREASED TENDENCY TO BRUISE [None]
  - GASTROINTESTINAL HAEMORRHAGE [None]
  - HAEMORRHOIDS [None]
  - HYPOCOAGULABLE STATE [None]
  - COLITIS ULCERATIVE [None]
  - ANAEMIA [None]
  - INSOMNIA [None]
  - RENAL ARTERY THROMBOSIS [None]
  - ALOPECIA [None]
  - DEEP VEIN THROMBOSIS [None]
  - INFLAMMATORY BOWEL DISEASE [None]
  - VULVOVAGINAL CANDIDIASIS [None]
  - ANXIETY [None]
  - PSEUDOPOLYPOSIS [None]
  - RENAL VEIN THROMBOSIS [None]
  - THROMBOSIS [None]
